FAERS Safety Report 16637760 (Version 4)
Quarter: 2019Q4

REPORT INFORMATION
  Report Type: Spontaneous
  Country: US (occurrence: US)
  Receive Date: 20190726
  Receipt Date: 20191121
  Transmission Date: 20200122
  Serious: Yes (Other)
  Sender: FDA-Public Use
  Company Number: US-PFIZER INC-2019309623

PATIENT
  Age: 75 Year
  Sex: Female

DRUGS (2)
  1. CAMPTOSAR [Suspect]
     Active Substance: IRINOTECAN HYDROCHLORIDE
     Dosage: 100 MG, (100 MG (4))
  2. CAMPTOSAR [Suspect]
     Active Substance: IRINOTECAN HYDROCHLORIDE
     Indication: COLON CANCER
     Dosage: 180 MG, UNK (180MG IVPB Q14D) (180 MG EVERY 14 DAYS)
     Route: 042
     Dates: start: 20191002

REACTIONS (2)
  - Second primary malignancy [Unknown]
  - Lung carcinoma cell type unspecified stage IV [Unknown]
